FAERS Safety Report 4942187-8 (Version None)
Quarter: 2006Q1

REPORT INFORMATION
  Report Type: 
  Country: None (occurrence: None)
  Receive Date: 20060313
  Receipt Date: 20050826
  Transmission Date: 20060701
  Serious: No
  Sender: FDA-Public Use
  Company Number: US-GLAXOSMITHKLINE-A0572066A

PATIENT
  Sex: Female

DRUGS (1)
  1. AMERICAN FARE NICOTINE GUM 2MG, ORIGINAL [Suspect]

REACTIONS (3)
  - DECREASED APPETITE [None]
  - HYPERVIGILANCE [None]
  - INTENTIONAL DRUG MISUSE [None]
